FAERS Safety Report 15164527 (Version 2)
Quarter: 2018Q3

REPORT INFORMATION
  Report Type: Spontaneous
  Country: US (occurrence: US)
  Receive Date: 20180719
  Receipt Date: 20180820
  Transmission Date: 20181010
  Serious: No
  Sender: FDA-Public Use
  Company Number: US-BAUSCH-BL-2018-018822

PATIENT
  Age: 67 Year
  Sex: Female

DRUGS (1)
  1. VYZULTA [Suspect]
     Active Substance: LATANOPROSTENE BUNOD
     Indication: GLAUCOMA
     Dosage: USED FOR LESS THAN TWO WEEKS
     Route: 047

REACTIONS (2)
  - Blister [Recovered/Resolved]
  - Eyelids pruritus [Recovered/Resolved]
